FAERS Safety Report 23250743 (Version 1)
Quarter: 2023Q4

REPORT INFORMATION
  Report Type: Spontaneous
  Country: IT (occurrence: IT)
  Receive Date: 20231201
  Receipt Date: 20231201
  Transmission Date: 20240110
  Serious: Yes (Other)
  Sender: FDA-Public Use
  Company Number: IT-002147023-NVSC2023IT251593

PATIENT
  Age: 58 Year
  Sex: Female

DRUGS (4)
  1. DABRAFENIB [Suspect]
     Active Substance: DABRAFENIB
     Indication: Lung adenocarcinoma
     Dosage: UNK
     Route: 048
     Dates: start: 20200429, end: 202005
  2. DABRAFENIB [Suspect]
     Active Substance: DABRAFENIB
     Indication: BRAF gene mutation
     Dosage: 50 PERCENT DOSE REDUCTION
     Route: 065
     Dates: start: 202005
  3. TRAMETINIB [Suspect]
     Active Substance: TRAMETINIB
     Indication: Lung adenocarcinoma
     Dosage: UNK
     Route: 048
     Dates: start: 20200429, end: 202005
  4. TRAMETINIB [Suspect]
     Active Substance: TRAMETINIB
     Indication: BRAF gene mutation
     Dosage: 50 PERCENT DOSE REDUCTION
     Route: 048
     Dates: start: 202005

REACTIONS (9)
  - Lung adenocarcinoma [Unknown]
  - BRAF gene mutation [Unknown]
  - Malignant neoplasm progression [Unknown]
  - Nausea [Unknown]
  - Abdominal pain upper [Unknown]
  - Skin toxicity [Unknown]
  - Asthenia [Unknown]
  - Pyrexia [Unknown]
  - Drug ineffective for unapproved indication [Unknown]

NARRATIVE: CASE EVENT DATE: 20200101
